FAERS Safety Report 12667635 (Version 1)
Quarter: 2016Q3

REPORT INFORMATION
  Report Type: Spontaneous
  Country: US (occurrence: US)
  Receive Date: 20160819
  Receipt Date: 20160819
  Transmission Date: 20161109
  Serious: No
  Sender: FDA-Public Use
  Company Number: US-MEDA-2016080034

PATIENT
  Sex: Female
  Weight: 64 kg

DRUGS (2)
  1. DYMISTA [Suspect]
     Active Substance: AZELASTINE HYDROCHLORIDE\FLUTICASONE PROPIONATE
     Indication: RHINITIS ALLERGIC
     Dates: start: 20160808, end: 20160808
  2. LEVOTHYROXINE. [Concomitant]
     Active Substance: LEVOTHYROXINE
     Indication: THYROID DISORDER

REACTIONS (15)
  - Sluggishness [Recovering/Resolving]
  - Somnolence [Not Recovered/Not Resolved]
  - Headache [Recovering/Resolving]
  - Nausea [Recovering/Resolving]
  - Eye symptom [Recovering/Resolving]
  - Metamorphopsia [Recovering/Resolving]
  - Dyschromatopsia [Recovering/Resolving]
  - Eye pain [Not Recovered/Not Resolved]
  - Rhinalgia [Recovering/Resolving]
  - Head discomfort [Recovering/Resolving]
  - Halo vision [Recovering/Resolving]
  - Ocular discomfort [Recovering/Resolving]
  - Paranasal sinus discomfort [Not Recovered/Not Resolved]
  - Dizziness [Not Recovered/Not Resolved]
  - Nasal discomfort [Not Recovered/Not Resolved]

NARRATIVE: CASE EVENT DATE: 20160808
